FAERS Safety Report 6762401-6 (Version None)
Quarter: 2010Q2

REPORT INFORMATION
  Report Type: 
  Country: None (occurrence: None)
  Receive Date: 20100609
  Receipt Date: 20091124
  Transmission Date: 20101027
  Serious: No
  Sender: FDA-Public Use
  Company Number: US-ABBOTT-09P-163-0599477-00

PATIENT
  Sex: Female
  Weight: 63.56 kg

DRUGS (8)
  1. K-TAB [Suspect]
     Indication: HYPOKALAEMIA
     Route: 048
     Dates: start: 20090901, end: 20090901
  2. K-TAB [Suspect]
     Route: 048
     Dates: start: 20090901, end: 20090901
  3. KLOR-CON [Suspect]
     Indication: ELECTROLYTE SUBSTITUTION THERAPY
     Dates: start: 20090919
  4. VALIUM [Concomitant]
     Indication: DRUG USE FOR UNKNOWN INDICATION
  5. XANAX [Concomitant]
     Indication: DRUG USE FOR UNKNOWN INDICATION
  6. MAXZIDE [Concomitant]
     Indication: DRUG USE FOR UNKNOWN INDICATION
  7. DARVOCET [Concomitant]
     Indication: DRUG USE FOR UNKNOWN INDICATION
  8. ADVIL LIQUI-GELS [Concomitant]
     Indication: PAIN

REACTIONS (11)
  - ABDOMINAL DISTENSION [None]
  - BLOOD ELECTROLYTES ABNORMAL [None]
  - CONFUSIONAL STATE [None]
  - DISTURBANCE IN ATTENTION [None]
  - FEELING ABNORMAL [None]
  - INCORRECT DOSE ADMINISTERED [None]
  - LETHARGY [None]
  - NAUSEA [None]
  - PARAESTHESIA [None]
  - SKIN TIGHTNESS [None]
  - SWELLING [None]
